FAERS Safety Report 16171379 (Version 1)
Quarter: 2019Q2

REPORT INFORMATION
  Report Type: Spontaneous
  Country: US (occurrence: US)
  Receive Date: 20190408
  Receipt Date: 20190408
  Transmission Date: 20190711
  Serious: No
  Sender: FDA-Public Use
  Company Number: US-TARO-2018TAR00711

PATIENT
  Age: 71 Year
  Sex: Female
  Weight: 51.25 kg

DRUGS (3)
  1. UNSPECIFIED FACE CREAM [Concomitant]
     Active Substance: UNSPECIFIED INGREDIENT
  2. CICLOPIROX SHAMPOO 1% [Suspect]
     Active Substance: CICLOPIROX
     Indication: DANDRUFF
  3. CICLOPIROX SHAMPOO 1% [Suspect]
     Active Substance: CICLOPIROX
     Indication: SEBORRHOEIC DERMATITIS
     Dosage: 1 TSP, 2X/WEEK AND THERE HAD TO BE 3 DAYS IN BETWEEN
     Route: 061
     Dates: start: 20180815

REACTIONS (1)
  - Alopecia [Not Recovered/Not Resolved]

NARRATIVE: CASE EVENT DATE: 201808
